FAERS Safety Report 7434952-2 (Version None)
Quarter: 2011Q2

REPORT INFORMATION
  Report Type: 
  Country: None (occurrence: None)
  Receive Date: 20110425
  Receipt Date: 20110418
  Transmission Date: 20111010
  Serious: Yes (Hospitalization, Other)
  Sender: FDA-Public Use
  Company Number: US-ROCHE-772621

PATIENT
  Age: 36 Year
  Sex: Female
  Weight: 91.6 kg

DRUGS (4)
  1. KYTRIL [Suspect]
     Route: 065
     Dates: start: 20050101
  2. DILANTIN [Suspect]
     Route: 048
  3. DILANTIN [Suspect]
     Dosage: 100MG 03 IN AM AND 02 AT PM(MON, TUE, THURS, SAT); 100MG 03 IN AM, 03 AT PM(WED, FRI, SUN)
     Route: 048
     Dates: start: 19950101, end: 19980701
  4. VERSED [Suspect]
     Indication: HEART RATE IRREGULAR
     Dosage: FORM: SOLUTION FOR INJECTION; OTHER INDICATION: BLOOD PRESSURE ABNORMAL
     Route: 065
     Dates: start: 19980701, end: 19980701

REACTIONS (12)
  - GAIT DISTURBANCE [None]
  - ASTROCYTOMA [None]
  - NASOPHARYNGITIS [None]
  - CONVULSION [None]
  - DIABETES MELLITUS [None]
  - BLOOD PRESSURE ABNORMAL [None]
  - BLOOD POTASSIUM ABNORMAL [None]
  - CARDIOVASCULAR DISORDER [None]
  - ANAEMIA [None]
  - JOINT RANGE OF MOTION DECREASED [None]
  - NAUSEA [None]
  - MEMORY IMPAIRMENT [None]
